FAERS Safety Report 9839074 (Version 1)
Quarter: 2014Q1

REPORT INFORMATION
  Report Type: Spontaneous
  Country: US (occurrence: US)
  Receive Date: 20140123
  Receipt Date: 20140123
  Transmission Date: 20141002
  Serious: No
  Sender: FDA-Public Use
  Company Number: US-TEVA-457040USA

PATIENT
  Sex: Female

DRUGS (1)
  1. AMRIX [Suspect]
     Dates: start: 20131209

REACTIONS (1)
  - Fatigue [Unknown]
